FAERS Safety Report 7047746-7 (Version None)
Quarter: 2010Q4

REPORT INFORMATION
  Report Type: 
  Country: None (occurrence: None)
  Receive Date: 20101015
  Receipt Date: 20101006
  Transmission Date: 20110411
  Serious: Yes (Hospitalization, Other)
  Sender: FDA-Public Use
  Company Number: US-ABBOTT-10P-163-0672275-00

PATIENT
  Sex: Female
  Weight: 85.806 kg

DRUGS (23)
  1. HUMIRA [Suspect]
     Indication: CROHN'S DISEASE
     Dates: start: 20071201, end: 20090801
  2. HUMIRA [Suspect]
     Indication: ARTHRITIS
     Route: 058
     Dates: start: 20090801
  3. HUMIRA [Suspect]
     Indication: PSORIASIS
  4. PREDNISONE [Concomitant]
     Indication: CROHN'S DISEASE
  5. PREDNISONE [Concomitant]
     Indication: ARTHRITIS
     Dosage: DAILY
     Route: 048
  6. AMBIEN [Concomitant]
     Indication: SLEEP DISORDER
     Dosage: AT NIGHT, AS NEEDED
     Route: 048
  7. OXYCONTIN [Concomitant]
     Indication: ARTHRITIS
     Route: 048
  8. OXYCONTIN [Concomitant]
     Indication: PAIN
  9. FOLIC ACID [Concomitant]
     Indication: VITAMIN SUPPLEMENTATION
  10. FLEXERIL [Concomitant]
     Indication: ARTHRITIS
     Route: 048
  11. FLEXERIL [Concomitant]
     Indication: PAIN
  12. ABILIFY [Concomitant]
     Indication: DEPRESSION
  13. ADDERALL XR 10 [Concomitant]
     Indication: ENERGY INCREASED
     Route: 048
  14. PROTONIX [Concomitant]
     Indication: GASTROOESOPHAGEAL REFLUX DISEASE
     Route: 048
  15. VICODIN [Concomitant]
     Indication: ARTHRITIS
     Dosage: 5-500MG, EVERY 4 HRS AS NEEDED
     Route: 048
  16. ATENOLOL [Concomitant]
     Indication: HYPERTENSION
     Route: 048
  17. FLINTSTONES COMPLETE [Concomitant]
     Indication: VITAMIN SUPPLEMENTATION
     Route: 008
  18. VITAMIN B-12 [Concomitant]
     Indication: VITAMIN SUPPLEMENTATION
     Route: 050
  19. CHOLECALCIFEROL [Concomitant]
     Indication: PRODUCT USED FOR UNKNOWN INDICATION
     Route: 048
  20. ZOFRAN [Concomitant]
     Indication: PRODUCT USED FOR UNKNOWN INDICATION
     Route: 048
  21. MIRALAX [Concomitant]
     Indication: PRODUCT USED FOR UNKNOWN INDICATION
     Route: 048
  22. ZANTAC [Concomitant]
     Indication: PRODUCT USED FOR UNKNOWN INDICATION
     Route: 048
  23. SENNA [Concomitant]
     Indication: PRODUCT USED FOR UNKNOWN INDICATION
     Route: 048

REACTIONS (26)
  - ABDOMINAL DISTENSION [None]
  - ABDOMINAL PAIN [None]
  - ABDOMINAL PAIN LOWER [None]
  - ABDOMINAL PAIN UPPER [None]
  - ADHESION [None]
  - ASTHENIA [None]
  - BIPOLAR DISORDER [None]
  - CANDIDIASIS [None]
  - CONSTIPATION [None]
  - DEHYDRATION [None]
  - DIARRHOEA [None]
  - DYSURIA [None]
  - FLANK PAIN [None]
  - GASTROINTESTINAL MOTILITY DISORDER [None]
  - HEPATIC STEATOSIS [None]
  - INTESTINAL OBSTRUCTION [None]
  - NAUSEA [None]
  - OVARIAN CYST [None]
  - PANCREATITIS ACUTE [None]
  - SYNCOPE [None]
  - THYROID DISORDER [None]
  - TRANSAMINASES INCREASED [None]
  - URINARY TRACT INFECTION [None]
  - VITAMIN D DEFICIENCY [None]
  - VOMITING [None]
  - WEIGHT DECREASED [None]
